FAERS Safety Report 7030950-1 (Version None)
Quarter: 2010Q4

REPORT INFORMATION
  Report Type: 
  Country: None (occurrence: None)
  Receive Date: 20101006
  Receipt Date: 20100127
  Transmission Date: 20110411
  Serious: No
  Sender: FDA-Public Use
  Company Number: US-BRISTOL-MYERS SQUIBB COMPANY-14269500

PATIENT
  Age: 52 Year
  Sex: Female
  Weight: 74 kg

DRUGS (4)
  1. KENALOG-40 [Suspect]
     Indication: ARTHRALGIA
  2. ZYRTEC [Concomitant]
  3. ESTROGEN [Concomitant]
  4. LISINOPRIL [Concomitant]

REACTIONS (3)
  - INSOMNIA [None]
  - MUSCLE ATROPHY [None]
  - PAIN IN EXTREMITY [None]
